FAERS Safety Report 15311180 (Version 1)
Quarter: 2018Q3

REPORT INFORMATION
  Report Type: Spontaneous
  Country: US (occurrence: US)
  Receive Date: 20180823
  Receipt Date: 20180823
  Transmission Date: 20181010
  Serious: No
  Sender: FDA-Public Use
  Company Number: US-SHIRE-US201832503

PATIENT
  Sex: Female

DRUGS (1)
  1. NATPARA (PARATHYROID HORMONE) [Suspect]
     Active Substance: PARATHYROID HORMONE
     Indication: PRODUCT USED FOR UNKNOWN INDICATION
     Dosage: 200 ?G, 1X/DAY:QD
     Route: 058
     Dates: start: 20151209

REACTIONS (5)
  - Inappropriate schedule of drug administration [Unknown]
  - Chest pain [Unknown]
  - Limb injury [Unknown]
  - Tearfulness [Unknown]
  - Hypocalcaemia [Unknown]
